FAERS Safety Report 7821293-4 (Version None)
Quarter: 2011Q4

REPORT INFORMATION
  Report Type: 
  Country: None (occurrence: None)
  Receive Date: 20111018
  Receipt Date: 20110809
  Transmission Date: 20120403
  Serious: No
  Sender: FDA-Public Use
  Company Number: US-ASTRAZENECA-2011SE47456

PATIENT
  Age: 77 Year
  Sex: Female
  Weight: 49.9 kg

DRUGS (5)
  1. SYMBICORT [Suspect]
     Dosage: 160/4.5 MCG, 1 PUFFS, BID
     Route: 055
  2. HEART MEDS [Concomitant]
  3. BP MED [Concomitant]
  4. ALBUTEROL [Concomitant]
  5. SYMBICORT [Suspect]
     Indication: ASTHMA
     Dosage: 160/4.5 MCG, 2 PUFFS, BID
     Route: 055
     Dates: start: 20110701

REACTIONS (6)
  - CHEST PAIN [None]
  - FATIGUE [None]
  - INCORRECT DOSE ADMINISTERED [None]
  - BACK PAIN [None]
  - DEPRESSION [None]
  - INSOMNIA [None]
